FAERS Safety Report 13004564 (Version 1)
Quarter: 2016Q4

REPORT INFORMATION
  Report Type: Spontaneous
  Country: AU (occurrence: AU)
  Receive Date: 20161207
  Receipt Date: 20161207
  Transmission Date: 20170207
  Serious: Yes (Death, Hospitalization)
  Sender: FDA-Public Use
  Company Number: AU-009507513-1612AUS002074

PATIENT
  Age: 65 Year
  Sex: Male

DRUGS (2)
  1. YERVOY [Suspect]
     Active Substance: IPILIMUMAB
     Dosage: 3 MG/KG, ONCE EVERY 3 WEEKS
     Dates: start: 20150430
  2. PEMBROLIZUMAB. [Suspect]
     Active Substance: PEMBROLIZUMAB
     Indication: MALIGNANT MELANOMA
     Dosage: ONCE EVERY 3 WEEKS

REACTIONS (5)
  - Completed suicide [Fatal]
  - Dizziness [Unknown]
  - Balance disorder [Unknown]
  - Confusional state [Unknown]
  - Colitis [Unknown]

NARRATIVE: CASE EVENT DATE: 20160830
